APPROVED DRUG PRODUCT: ISOCAINE HYDROCHLORIDE
Active Ingredient: MEPIVACAINE HYDROCHLORIDE
Strength: 3%
Dosage Form/Route: INJECTABLE;INJECTION
Application: A080925 | Product #001
Applicant: SEPTODONT INC
Approved: Approved Prior to Jan 1, 1982 | RLD: No | RS: No | Type: DISCN